FAERS Safety Report 7774026-4 (Version None)
Quarter: 2011Q3

REPORT INFORMATION
  Report Type: 
  Country: None (occurrence: None)
  Receive Date: 20110923
  Receipt Date: 20110922
  Transmission Date: 20111222
  Serious: Yes (Death, Life-Threatening)
  Sender: FDA-Public Use
  Company Number: JP-PFIZER INC-2011203539

PATIENT
  Age: 95 Year
  Sex: Male

DRUGS (5)
  1. BUFFERIN [Concomitant]
     Indication: ARTERIOSCLEROSIS OBLITERANS
     Dosage: 81 MG, 1X/DAY
     Route: 048
  2. EPLERENONE [Suspect]
     Indication: HYPERTENSION
     Dosage: 50 MG, 1X/DAY
     Dates: start: 20110223, end: 20110413
  3. CANDESARTAN CILEXETIL [Concomitant]
     Indication: HYPERTENSION
     Dosage: 8 MG, 1X/DAY
     Route: 048
  4. FUROSEMIDE [Concomitant]
     Indication: CARDIAC FAILURE
     Dosage: 20 MG, 1X/DAY
     Route: 048
  5. EPLERENONE [Suspect]
     Indication: CARDIAC FAILURE

REACTIONS (2)
  - GALLBLADDER CANCER [None]
  - HYPERKALAEMIA [None]
